FAERS Safety Report 5425272-6 (Version None)
Quarter: 2007Q3

REPORT INFORMATION
  Report Type: 
  Country: None (occurrence: None)
  Receive Date: 20070824
  Receipt Date: 20070813
  Transmission Date: 20080115
  Serious: Yes (Other)
  Sender: FDA-Public Use
  Company Number: US-PURDUE-USA_2007_0028344

PATIENT
  Age: 38 Year
  Sex: Female
  Weight: 83 kg

DRUGS (3)
  1. OXYCONTIN [Suspect]
     Indication: SICKLE CELL ANAEMIA
     Dosage: UNK, SEE TEXT
     Dates: start: 19980501, end: 20020101
  2. FOLIC ACID [Concomitant]
     Dosage: 1 MG, UNK
  3. HYDREA [Concomitant]
     Dosage: 500 MG, UNK

REACTIONS (5)
  - CEREBROVASCULAR ACCIDENT [None]
  - DEPRESSION [None]
  - FORMICATION [None]
  - HALLUCINATION [None]
  - HALLUCINATION, AUDITORY [None]
